FAERS Safety Report 10241765 (Version 2)
Quarter: 2014Q3

REPORT INFORMATION
  Report Type: Spontaneous
  Country: US (occurrence: None)
  Receive Date: 20140613
  Receipt Date: 20140718
  Transmission Date: 20150326
  Serious: Yes (Other)
  Sender: FDA-Public Use
  Company Number: ADR-2014-01004

PATIENT
  Age: 46 Year
  Sex: Female

DRUGS (1)
  1. LIORESAL [Suspect]
     Active Substance: BACLOFEN
     Indication: MUSCLE SPASTICITY

REACTIONS (6)
  - Weight decreased [None]
  - Asthma [None]
  - Muscle twitching [None]
  - Discomfort [None]
  - Coeliac disease [None]
  - Device issue [None]

NARRATIVE: CASE EVENT DATE: 20130603
